FAERS Safety Report 23737174 (Version 1)
Quarter: 2024Q2

REPORT INFORMATION
  Report Type: Spontaneous
  Country: US (occurrence: US)
  Receive Date: 20240412
  Receipt Date: 20240412
  Transmission Date: 20240716
  Serious: No
  Sender: FDA-Public Use
  Company Number: US-PFIZER INC-PV202400047132

PATIENT
  Age: 79 Year
  Sex: Male

DRUGS (5)
  1. PAXLOVID [Suspect]
     Active Substance: NIRMATRELVIR\RITONAVIR
     Indication: COVID-19 treatment
     Dosage: UNK
  2. OFEV [Suspect]
     Active Substance: NINTEDANIB
     Indication: Idiopathic pulmonary fibrosis
     Dosage: 300 MG, 1X/DAY
     Route: 048
     Dates: start: 20230810
  3. OFEV [Suspect]
     Active Substance: NINTEDANIB
     Dosage: 150 MG
     Route: 048
     Dates: end: 20230904
  4. OFEV [Suspect]
     Active Substance: NINTEDANIB
     Dosage: 150 MG
     Route: 048
     Dates: start: 20230911
  5. OFEV [Suspect]
     Active Substance: NINTEDANIB
     Dosage: 100 MG
     Route: 048
     Dates: end: 20240406

REACTIONS (11)
  - Hepatic enzyme abnormal [Recovered/Resolved]
  - COVID-19 [Unknown]
  - Disease recurrence [Unknown]
  - Skin discolouration [Not Recovered/Not Resolved]
  - Diarrhoea [Recovered/Resolved]
  - Abdominal pain [Unknown]
  - Pain [Not Recovered/Not Resolved]
  - Weight decreased [Recovering/Resolving]
  - Influenza [Unknown]
  - Initial insomnia [Unknown]
  - Fatigue [Unknown]

NARRATIVE: CASE EVENT DATE: 20230101
